FAERS Safety Report 4371255-7 (Version None)
Quarter: 2004Q2

REPORT INFORMATION
  Report Type: 
  Country: None (occurrence: None)
  Receive Date: 20040603
  Receipt Date: 20040520
  Transmission Date: 20050107
  Serious: Yes (Other)
  Sender: FDA-Public Use
  Company Number: 2004214552US

PATIENT
  Sex: Male

DRUGS (1)
  1. XANAX [Suspect]
     Indication: PANIC ATTACK
     Dosage: 4.5 MG, QD, ORAL
     Route: 048
     Dates: start: 19860101

REACTIONS (13)
  - DEPRESSION [None]
  - DIFFICULTY IN WALKING [None]
  - DRUG DEPENDENCE [None]
  - DRUG INEFFECTIVE [None]
  - DRUG TOLERANCE [None]
  - DRUG WITHDRAWAL SYNDROME [None]
  - FEAR [None]
  - INSOMNIA [None]
  - NERVOUS SYSTEM DISORDER [None]
  - NEURALGIA [None]
  - PAIN [None]
  - SOCIAL AVOIDANT BEHAVIOUR [None]
  - SPEECH DISORDER [None]
